FAERS Safety Report 10385676 (Version 1)
Quarter: 2014Q3

REPORT INFORMATION
  Report Type: Spontaneous
  Country: FR (occurrence: FR)
  Receive Date: 20140814
  Receipt Date: 20140814
  Transmission Date: 20150326
  Serious: Yes (Hospitalization)
  Sender: FDA-Public Use
  Company Number: FR-PFIZER INC-2014222370

PATIENT
  Age: 61 Year
  Sex: Male

DRUGS (14)
  1. COUMADINE [Suspect]
     Active Substance: WARFARIN SODIUM
     Dosage: 2 MG, DAILY
     Dates: start: 20140531, end: 20140602
  2. KARDEGIC [Concomitant]
     Active Substance: ASPIRIN LYSINE
     Dosage: 75 MG, DAILY
     Dates: start: 20140515, end: 20140608
  3. CORDARONE [Concomitant]
     Active Substance: AMIODARONE HYDROCHLORIDE
     Dosage: 200 MG, DAILY
     Dates: start: 20140515, end: 20140608
  4. SPECIAFOLDINE [Concomitant]
     Active Substance: FOLIC ACID
     Dosage: 5 MG, 3X/DAY
     Dates: start: 20140519, end: 20140608
  5. CETIRIZINE [Concomitant]
     Active Substance: CETIRIZINE HYDROCHLORIDE
     Dosage: 10 MG, DAILY
     Dates: start: 20140602, end: 20140608
  6. DIFFU K [Concomitant]
     Active Substance: POTASSIUM CHLORIDE
     Dosage: UNK
     Dates: start: 20140515, end: 20140613
  7. FUROSEMIDE. [Concomitant]
     Active Substance: FUROSEMIDE
     Dosage: UNK
     Dates: start: 20140515, end: 20140608
  8. KAYEXALATE [Concomitant]
     Active Substance: SODIUM POLYSTYRENE SULFONATE
     Dosage: UNK
     Dates: start: 20140529, end: 20140530
  9. TAZOCILLINE [Suspect]
     Active Substance: PIPERACILLIN SODIUM\TAZOBACTAM SODIUM
     Dosage: 4 G, 3X/DAY
     Route: 042
     Dates: start: 20140517, end: 20140524
  10. INIPOMP [Concomitant]
     Active Substance: PANTOPRAZOLE SODIUM
     Dosage: 40 MG, DAILY
  11. NICOPATCH [Concomitant]
     Active Substance: NICOTINE
     Dosage: 21 MG, DAILY
     Dates: start: 20140515, end: 20140608
  12. HEPARIN SODIUM. [Concomitant]
     Active Substance: HEPARIN SODIUM
     Dosage: UNK
     Dates: start: 20140515, end: 20140608
  13. BISOPROLOL [Concomitant]
     Active Substance: BISOPROLOL
     Dosage: 2.5 MG, DAILY
     Dates: start: 20140526, end: 20140608
  14. PREVISCAN [Concomitant]
     Active Substance: FLUINDIONE
     Dosage: 20 MG, DAILY
     Dates: start: 20140527, end: 20140527

REACTIONS (2)
  - Toxic skin eruption [Recovering/Resolving]
  - Linear IgA disease [Recovering/Resolving]

NARRATIVE: CASE EVENT DATE: 20140606
